FAERS Safety Report 19281530 (Version 1)
Quarter: 2021Q2

REPORT INFORMATION
  Report Type: Spontaneous
  Country: US (occurrence: US)
  Receive Date: 20210521
  Receipt Date: 20210521
  Transmission Date: 20210717
  Serious: Yes (Hospitalization, Other)
  Sender: FDA-Public Use
  Company Number: US-AMGEN-USASP2021076305

PATIENT
  Age: 9 Month
  Sex: Male

DRUGS (2)
  1. BLINATUMOMAB [Suspect]
     Active Substance: BLINATUMOMAB
     Indication: B PRECURSOR TYPE ACUTE LEUKAEMIA
     Dosage: UNK
     Route: 065
  2. INOTUZUMAB [Concomitant]
     Active Substance: INOTUZUMAB OZOGAMICIN
     Dosage: UNK

REACTIONS (7)
  - Drug ineffective [Unknown]
  - Pancytopenia [Recovering/Resolving]
  - Leukaemic infiltration extramedullary [Unknown]
  - Cellulitis [Unknown]
  - Pseudomonas infection [Unknown]
  - Mucocutaneous haemorrhage [Recovering/Resolving]
  - Acute lymphocytic leukaemia recurrent [Unknown]
